FAERS Safety Report 6283511-6 (Version None)
Quarter: 2009Q3

REPORT INFORMATION
  Report Type: 
  Country: None (occurrence: None)
  Receive Date: 20090721
  Receipt Date: 20090721
  Transmission Date: 20100115
  Serious: Yes (Death)
  Sender: FDA-Public Use
  Company Number: None

PATIENT
  Age: 62 Year
  Sex: Male

DRUGS (4)
  1. METHADONE HCL [Suspect]
     Indication: BACK INJURY
     Dosage: 12 TABLETS EVERY 8 HOURS PO
     Route: 048
     Dates: start: 20080109, end: 20090130
  2. METHADONE HCL [Suspect]
     Indication: PAIN
     Dosage: 12 TABLETS EVERY 8 HOURS PO
     Route: 048
     Dates: start: 20080109, end: 20090130
  3. MORPHINE [Concomitant]
  4. DIAZEPAM [Concomitant]

REACTIONS (3)
  - ARTERIOSCLEROSIS [None]
  - CARDIAC ARREST [None]
  - OVERDOSE [None]
